FAERS Safety Report 14010692 (Version 1)
Quarter: 2017Q3

REPORT INFORMATION
  Report Type: Spontaneous
  Country: US (occurrence: US)
  Receive Date: 20170926
  Receipt Date: 20170926
  Transmission Date: 20171128
  Serious: No
  Sender: FDA-Public Use
  Company Number: US-USVNA-000004

PATIENT
  Age: 82 Year
  Sex: Female

DRUGS (1)
  1. OLOPATADINE/OLOPATADINE HYDROCHLORIDE [Suspect]
     Active Substance: OLOPATADINE
     Indication: EYE PRURITUS
     Dosage: STRENGTH: 0.1%.

REACTIONS (1)
  - Drug ineffective [Unknown]
